FAERS Safety Report 23864152 (Version 1)
Quarter: 2024Q2

REPORT INFORMATION
  Report Type: Spontaneous
  Country: ES (occurrence: ES)
  Receive Date: 20240516
  Receipt Date: 20240516
  Transmission Date: 20240716
  Serious: Yes (Death, Hospitalization, Other)
  Sender: FDA-Public Use
  Company Number: None

PATIENT
  Age: 50 Year
  Sex: Female

DRUGS (2)
  1. FLUDARABINE [Suspect]
     Active Substance: FLUDARABINE PHOSPHATE
     Indication: Diffuse large B-cell lymphoma
     Dosage: TIME INTERVAL: TOTAL: FLUDARABINA (3698A)
     Route: 042
     Dates: start: 20211104, end: 20211106
  2. YESCARTA [Suspect]
     Active Substance: AXICABTAGENE CILOLEUCEL
     Indication: Diffuse large B-cell lymphoma
     Dosage: TIME INTERVAL: TOTAL: YESCARTA 0.4 - 2 X 10E8 DISPERSION CELLS FOR PERFUSION
     Route: 042
     Dates: start: 20211110, end: 20211110

REACTIONS (3)
  - Non-Hodgkin^s lymphoma [Fatal]
  - Cytopenia [Fatal]
  - Cytokine release syndrome [Recovered/Resolved]

NARRATIVE: CASE EVENT DATE: 20211107
